FAERS Safety Report 5232728-8 (Version None)
Quarter: 2007Q1

REPORT INFORMATION
  Report Type: 
  Country: None (occurrence: None)
  Receive Date: 20070207
  Receipt Date: 20070131
  Transmission Date: 20070707
  Serious: Yes (Hospitalization)
  Sender: FDA-Public Use
  Company Number: US-AVENTIS-200710211US

PATIENT
  Sex: Male

DRUGS (10)
  1. APIDRA [Suspect]
     Dosage: DOSE: SLIDING SCALE, 9-15 UNITS 2-3 TIMES PER DAY
     Dates: start: 20060701
  2. NAPROXEN [Suspect]
     Route: 048
     Dates: start: 20060801, end: 20060903
  3. LEVEMIR [Concomitant]
     Dosage: DOSE: UNK
     Dates: start: 20060101
  4. COREG [Concomitant]
     Dosage: DOSE: UNK
  5. LISINOPRIL [Concomitant]
     Dosage: DOSE: UNK
  6. GLYBURIDE [Concomitant]
     Dosage: DOSE: UNK
  7. FUROSEMIDE [Concomitant]
     Dosage: DOSE: UNK
  8. WARFARIN SODIUM [Concomitant]
     Dosage: DOSE: UNK
  9. LIPITOR [Concomitant]
     Dosage: DOSE: UNK
  10. INSPRA                             /01613601/ [Concomitant]
     Dosage: DOSE: UNK

REACTIONS (5)
  - BLOOD GLUCOSE DECREASED [None]
  - BLOOD GLUCOSE FLUCTUATION [None]
  - DRUG INTERACTION [None]
  - HYPOGLYCAEMIA [None]
  - HYPOGLYCAEMIC COMA [None]
